FAERS Safety Report 9152474 (Version 1)
Quarter: 2013Q1

REPORT INFORMATION
  Report Type: Spontaneous
  Country: US (occurrence: US)
  Receive Date: 20130308
  Receipt Date: 20130308
  Transmission Date: 20140127
  Serious: No
  Sender: FDA-Public Use
  Company Number: US-MUTUAL PHARMACEUTICAL COMPANY, INC.-ALLP20120015

PATIENT
  Age: 67 Year
  Sex: Male
  Weight: 95.34 kg

DRUGS (7)
  1. ALLOPURINOL [Suspect]
     Indication: GOUT
     Route: 048
     Dates: start: 201201
  2. ALLOPURINOL [Suspect]
     Route: 048
     Dates: start: 2011, end: 201201
  3. COLCRYS [Suspect]
     Indication: GOUT
     Route: 048
     Dates: start: 20120915
  4. LISINOPRIL [Concomitant]
     Indication: HYPERTENSION
     Route: 048
  5. PLAVIX [Concomitant]
     Indication: ANTICOAGULANT THERAPY
     Route: 048
  6. METOPROLOL [Concomitant]
     Indication: CARDIAC DISORDER
     Route: 048
  7. PRAVASTATIN [Concomitant]
     Indication: BLOOD CHOLESTEROL INCREASED
     Route: 048

REACTIONS (2)
  - Toothache [Recovered/Resolved]
  - Drug ineffective [None]
